FAERS Safety Report 14759119 (Version 1)
Quarter: 2018Q2

REPORT INFORMATION
  Report Type: Spontaneous
  Country: US (occurrence: US)
  Receive Date: 20180413
  Receipt Date: 20180413
  Transmission Date: 20180711
  Serious: No
  Sender: FDA-Public Use
  Company Number: US-B.I. PHARMACEUTICALS,INC./RIDGEFIELD-2018-BI-019307

PATIENT
  Age: 56 Year
  Sex: Female

DRUGS (9)
  1. NICARDIPINE INFUSION [Concomitant]
     Indication: HYPERTENSION
     Route: 065
  2. NICARDIPINE INFUSION [Concomitant]
     Dosage: INCREASED TO 12 MG/ HR OVERNIGHT
     Route: 065
  3. XRNTX [Concomitant]
     Indication: DRUG WITHDRAWAL SYNDROME
     Route: 065
  4. ONDANSETRON [Concomitant]
     Active Substance: ONDANSETRON
     Indication: PRODUCT USED FOR UNKNOWN INDICATION
     Route: 042
  5. DIAZEPAM. [Concomitant]
     Active Substance: DIAZEPAM
     Route: 042
  6. LOPERAMIDE [Concomitant]
     Active Substance: LOPERAMIDE
     Indication: PRODUCT USED FOR UNKNOWN INDICATION
     Route: 048
  7. 0.9% NS IV [Concomitant]
     Indication: PRODUCT USED FOR UNKNOWN INDICATION
     Dosage: 1 L OF 0.9%
     Route: 042
  8. CLONIDINE. [Suspect]
     Active Substance: CLONIDINE
     Indication: PRODUCT USED FOR UNKNOWN INDICATION
     Route: 048
  9. DIAZEPAM. [Concomitant]
     Active Substance: DIAZEPAM
     Indication: PRODUCT USED FOR UNKNOWN INDICATION
     Route: 042

REACTIONS (1)
  - Treatment failure [Unknown]
